FAERS Safety Report 18238781 (Version 3)
Quarter: 2021Q1

REPORT INFORMATION
  Report Type: Spontaneous
  Country: US (occurrence: US)
  Receive Date: 20200907
  Receipt Date: 20210127
  Transmission Date: 20210419
  Serious: No
  Sender: FDA-Public Use
  Company Number: US-JNJFOC-A-US2020-208214

PATIENT
  Age: 66 Year
  Sex: Female

DRUGS (4)
  1. UPTRAVI [Suspect]
     Active Substance: SELEXIPAG
     Indication: PULMONARY ARTERIAL HYPERTENSION
     Dosage: 200 MCG, BID
     Route: 048
     Dates: start: 20200729
  2. OPSUMIT [Suspect]
     Active Substance: MACITENTAN
     Indication: PULMONARY ARTERIAL HYPERTENSION
     Route: 048
     Dates: start: 20200708
  3. OPSUMIT [Suspect]
     Active Substance: MACITENTAN
     Route: 048
     Dates: start: 20200722
  4. UPTRAVI [Suspect]
     Active Substance: SELEXIPAG
     Dosage: 400MCG; BID.
     Route: 048
     Dates: start: 20200727

REACTIONS (10)
  - Headache [Unknown]
  - Arthritis [Unknown]
  - Diarrhoea [Unknown]
  - Oedema peripheral [Unknown]
  - Sinusitis [Recovered/Resolved]
  - Myalgia [Unknown]
  - Decreased appetite [Unknown]
  - Cough [Unknown]
  - Nausea [Unknown]
  - Arthralgia [Unknown]

NARRATIVE: CASE EVENT DATE: 2020
